FAERS Safety Report 19056962 (Version 1)
Quarter: 2021Q1

REPORT INFORMATION
  Report Type: Spontaneous
  Country: US (occurrence: US)
  Receive Date: 20210325
  Receipt Date: 20210325
  Transmission Date: 20210420
  Serious: No
  Sender: FDA-Public Use
  Company Number: US-TEVA-2021-US-1893882

PATIENT

DRUGS (1)
  1. QVAR REDIHALER [Suspect]
     Active Substance: BECLOMETHASONE DIPROPIONATE
     Dosage: INHALATION ? AEROSOL
     Route: 055

REACTIONS (5)
  - Device delivery system issue [Unknown]
  - Product residue present [Unknown]
  - Pulmonary pain [Unknown]
  - Wheezing [Unknown]
  - Choking sensation [Unknown]
